FAERS Safety Report 7589446-0 (Version None)
Quarter: 2011Q3

REPORT INFORMATION
  Report Type: 
  Country: None (occurrence: None)
  Receive Date: 20110705
  Receipt Date: 20110622
  Transmission Date: 20111222
  Serious: Yes (Other)
  Sender: FDA-Public Use
  Company Number: US-ROCHE-769869

PATIENT
  Sex: Female
  Weight: 52.2 kg

DRUGS (5)
  1. ACCUTANE [Suspect]
     Route: 065
     Dates: start: 20060101, end: 20070101
  2. ACCUTANE [Suspect]
     Route: 065
     Dates: start: 20080101, end: 20090101
  3. LIPITOR [Concomitant]
  4. PAXIL [Concomitant]
     Indication: DEPRESSION
  5. ZYRTEC [Concomitant]

REACTIONS (9)
  - COLITIS [None]
  - IRRITABLE BOWEL SYNDROME [None]
  - LIP DRY [None]
  - BLOOD TRIGLYCERIDES INCREASED [None]
  - ANXIETY [None]
  - BLOOD CHOLESTEROL INCREASED [None]
  - INFLAMMATORY BOWEL DISEASE [None]
  - DEPRESSION [None]
  - COLITIS ULCERATIVE [None]
